FAERS Safety Report 4297370-4 (Version None)
Quarter: 2004Q1

REPORT INFORMATION
  Report Type: 
  Country: None (occurrence: None)
  Receive Date: 20040213
  Receipt Date: 20040204
  Transmission Date: 20041129
  Serious: Yes (Death)
  Sender: FDA-Public Use
  Company Number: NSADSS2003019981

PATIENT
  Age: 85 Year
  Sex: Male
  Weight: 55.7924 kg

DRUGS (8)
  1. REMINYL [Suspect]
     Indication: DEMENTIA
     Dosage: 2 MG, ORAL
     Route: 048
     Dates: start: 20011204, end: 20021201
  2. SYNTHROID [Concomitant]
  3. KCL (POTASSIUM CHLORIDE) [Concomitant]
  4. ASPIRIN [Concomitant]
  5. DEMADEX [Concomitant]
  6. SINEMET [Concomitant]
  7. COREG [Concomitant]
  8. ZANAFLEX [Concomitant]

REACTIONS (2)
  - CARDIAC FAILURE CONGESTIVE [None]
  - PARKINSON'S DISEASE [None]
